FAERS Safety Report 12961525 (Version 4)
Quarter: 2017Q4

REPORT INFORMATION
  Report Type: Report from Study
  Country: US (occurrence: US)
  Receive Date: 20161121
  Receipt Date: 20171229
  Transmission Date: 20180320
  Serious: Yes (Hospitalization, Other)
  Sender: FDA-Public Use
  Company Number: US-ARIAD-2016US006800

PATIENT
  Age: 12 Year
  Sex: Male
  Weight: 43 kg

DRUGS (7)
  1. NELARABINE [Suspect]
     Active Substance: NELARABINE
     Indication: PRODUCT USED FOR UNKNOWN INDICATION
     Route: 065
  2. PONATINIB [Suspect]
     Active Substance: PONATINIB
     Dosage: 15 MG, QD
     Route: 048
  3. PONATINIB [Suspect]
     Active Substance: PONATINIB
     Dosage: 15 MG, QD
     Route: 048
  4. PONATINIB [Suspect]
     Active Substance: PONATINIB
     Dosage: 15 MG, QD
     Route: 048
     Dates: start: 20160812
  5. PONATINIB [Suspect]
     Active Substance: PONATINIB
     Indication: ACUTE LYMPHOCYTIC LEUKAEMIA RECURRENT
     Dosage: 15 MG, QD
     Route: 048
     Dates: start: 20160804
  6. PONATINIB [Suspect]
     Active Substance: PONATINIB
     Dosage: 15 MG, QD
     Route: 048
     Dates: end: 20161120
  7. PONATINIB [Suspect]
     Active Substance: PONATINIB
     Dosage: 15 MG, QD
     Route: 048
     Dates: start: 20170503

REACTIONS (14)
  - Chemotherapy [Not Recovered/Not Resolved]
  - Graft versus host disease in skin [Recovered/Resolved]
  - Chemical eye injury [Recovered/Resolved]
  - Contusion [Unknown]
  - Pyrexia [Recovered/Resolved]
  - Chest pain [Unknown]
  - Acute lymphocytic leukaemia recurrent [Unknown]
  - Alopecia [Unknown]
  - Rash [Unknown]
  - Cough [Unknown]
  - Escherichia test positive [Unknown]
  - Adjustment disorder [Unknown]
  - Off label use [Unknown]
  - Device related infection [Unknown]

NARRATIVE: CASE EVENT DATE: 20161025
